FAERS Safety Report 9380443 (Version 2)
Quarter: 2013Q3

REPORT INFORMATION
  Report Type: Spontaneous
  Country: FR (occurrence: None)
  Receive Date: 20130628
  Receipt Date: 20130710
  Transmission Date: 20140515
  Serious: Yes (Hospitalization)
  Sender: FDA-Public Use
  Company Number: IND1-FR-2013-0043

PATIENT
  Age: 42 Year
  Sex: Female
  Weight: 55 kg

DRUGS (12)
  1. INDOCID [Suspect]
     Indication: INFLAMMATORY PAIN
     Dosage: 50 MG (25 MG,2 IN 1 D)
     Route: 048
     Dates: start: 20130518, end: 20130523
  2. CHRONO-INDOCID [Suspect]
     Indication: INFLAMMATORY PAIN
     Route: 048
     Dates: start: 20130518, end: 20130523
  3. DESOBEL (MARVELON) (1 DOSAGE FORMS) (ETHINYLESTRADIOL, DESOGESTREL) [Concomitant]
  4. DIPROSONE (BETAMETHASONE) (1 DOSAGE FORMS) (BETAMETHASONE) [Concomitant]
  5. ACUPAN (NEFOPAM HYDROCHLORIDE) (1 DOSAGE FORMS, INJECTION) (NEFOPAM HYDROCHLORIDE) [Concomitant]
  6. TOPALGIC (TRAMADOL HYDROCHLORIDE) (100 MILLIGRAM, SUSTAINED-RELEASE TABLET) (TRAMADOL HYDROCHLORIDE) [Concomitant]
  7. MOTILIUM (DOMPERIDONE) (10 MILLIGRAM) (DOMPERIDONE) [Concomitant]
  8. INEXIUM (ESOMEPRAZOLE MAGNESIUM) (20 MILLIGRAM, TABLETS) (ESOMEPRAZOLE MAGNESIUM) [Concomitant]
  9. GAVISCON (GAVISCON /00237501/) (1 DOSAGE FORMS) (SODIUM BICARBONATE, ALUMINIUM HYDROXIDE GEL, DRIED, ALGINIC ACID, SODIUM ALGINATE, MAGNESIUM TRISILICATE) [Concomitant]
  10. ZOPICLONE (ZOPICLONE) (1 DOSAGE FORMS) (ZOPICLONE) [Concomitant]
  11. PARACETAMOL (PARACETAMOL) (PARACETAMOL) [Concomitant]
  12. LOVENOX (ENOXAPARIN SODIUM) (ENOXAPARIN SODIUM) [Concomitant]

REACTIONS (2)
  - Hepatocellular injury [None]
  - Gastrointestinal disorder [None]
